FAERS Safety Report 8059392-7 (Version None)
Quarter: 2012Q1

REPORT INFORMATION
  Report Type: 
  Country: None (occurrence: None)
  Receive Date: 20120113
  Receipt Date: 20120104
  Transmission Date: 20120608
  Serious: Yes (Other)
  Sender: FDA-Public Use
  Company Number: 2012SP001000

PATIENT
  Sex: Female

DRUGS (3)
  1. ADVAIR DISKUS 100/50 [Concomitant]
  2. CLARINEX-D 12 HOUR [Suspect]
     Indication: PRODUCT USED FOR UNKNOWN INDICATION
     Dosage: PO
     Route: 048
  3. BENADRYL [Suspect]
     Indication: HYPERSENSITIVITY
     Dosage: IV
     Route: 042
     Dates: start: 20120103

REACTIONS (8)
  - RASH [None]
  - PRURITUS [None]
  - DRUG HYPERSENSITIVITY [None]
  - DRUG INEFFECTIVE [None]
  - LUNG DISORDER [None]
  - OROPHARYNGEAL PAIN [None]
  - INSOMNIA [None]
  - URTICARIA [None]
